FAERS Safety Report 11211649 (Version 1)
Quarter: 2015Q2

REPORT INFORMATION
  Report Type: Spontaneous
  Country: IT (occurrence: IT)
  Receive Date: 20150623
  Receipt Date: 20150623
  Transmission Date: 20150821
  Serious: Yes (Hospitalization)
  Sender: FDA-Public Use
  Company Number: IT-ACTAVIS-2015-12275

PATIENT
  Age: 6 Year
  Sex: Male

DRUGS (4)
  1. DESAMETASONE FOSF                  /00016002/ [Concomitant]
     Active Substance: DEXAMETHASONE SODIUM PHOSPHATE
     Indication: OSTEOSARCOMA
     Dosage: 2 MG, UNKNOWN
     Route: 042
     Dates: start: 20150528, end: 20150529
  2. ONDANSETRON [Concomitant]
     Active Substance: ONDANSETRON
     Indication: OSTEOSARCOMA
     Dosage: 5 MG, UNKNOWN
     Route: 042
     Dates: start: 20150528
  3. CISPLATIN (UNKNOWN) [Suspect]
     Active Substance: CISPLATIN
     Indication: CHEMOTHERAPY
     Dosage: 53.4 MG, DAILY
     Route: 051
     Dates: start: 20150528, end: 20150530
  4. DOXORUBICIN (UNKNOWN) [Suspect]
     Active Substance: DOXORUBICIN
     Indication: CHEMOTHERAPY
     Dosage: 33.38 MG, DAILY
     Route: 065
     Dates: start: 20150528, end: 20150530

REACTIONS (1)
  - Vomiting [Unknown]

NARRATIVE: CASE EVENT DATE: 20150530
